FAERS Safety Report 21185153 (Version 1)
Quarter: 2022Q3

REPORT INFORMATION
  Report Type: Spontaneous
  Country: EG (occurrence: None)
  Receive Date: 20220807
  Receipt Date: 20220807
  Transmission Date: 20221027
  Serious: Yes (Hospitalization)
  Sender: FDA-Public Use
  Company Number: None

PATIENT
  Age: 70 Year
  Sex: Female
  Weight: 84 kg

DRUGS (5)
  1. CHLORPROMAZINE HYDROCHLORIDE [Suspect]
     Active Substance: CHLORPROMAZINE HYDROCHLORIDE
     Indication: Headache
     Dates: start: 20220723, end: 20220725
  2. Royal vit [Concomitant]
  3. vitB1 [Concomitant]
  4. vitB6 [Concomitant]
  5. vitB12 [Concomitant]

REACTIONS (8)
  - Extra dose administered [None]
  - Loss of consciousness [None]
  - Dizziness [None]
  - Dizziness [None]
  - Feeling abnormal [None]
  - Fatigue [None]
  - Nausea [None]
  - Blood potassium decreased [None]

NARRATIVE: CASE EVENT DATE: 20220723
